FAERS Safety Report 22323358 (Version 3)
Quarter: 2023Q2

REPORT INFORMATION
  Report Type: Report from Study
  Country: CN (occurrence: None)
  Receive Date: 20230516
  Receipt Date: 20230619
  Transmission Date: 20230722
  Serious: Yes (Hospitalization)
  Sender: FDA-Public Use
  Company Number: CN-ROCHE-3267148

PATIENT
  Age: 72 Year
  Sex: Male
  Weight: 78.1 kg

DRUGS (53)
  1. POLATUZUMAB VEDOTIN [Suspect]
     Active Substance: POLATUZUMAB VEDOTIN
     Indication: Diffuse large B-cell lymphoma
     Dosage: ON 23/NOV/2022, DOSE(129 MG) OF LAST POLATUZUMAB VEDOTIN ADMINISTERED PRIOR TO AE ONSET AND SAE.
     Route: 042
     Dates: start: 20220615
  2. GEMCITABINE [Suspect]
     Active Substance: GEMCITABINE
     Indication: Diffuse large B-cell lymphoma
     Dosage: ON 24/NOV/2022, DOSE (1850 MG) OF LAST GEMCITABINE ADMINISTERED PRIOR TO AE AND SAE ONSET.
     Route: 042
     Dates: start: 20220616
  3. RITUXIMAB [Suspect]
     Active Substance: RITUXIMAB
     Indication: Diffuse large B-cell lymphoma
     Dosage: ON 23/NOV/2022, DOSE (694MG) OF LAST RITUXIMAB ADMINISTERED PRIOR TO AE AND SAE ONSET.
     Route: 041
     Dates: start: 20220615
  4. OXALIPLATIN [Suspect]
     Active Substance: OXALIPLATIN
     Indication: Diffuse large B-cell lymphoma
     Dosage: ON 24/NOV/2022, DOSE(185 MG) OF LAST OXALIPLATIN ADMINISTERED PRIOR TO AE AND SAE ONSET
     Route: 042
     Dates: start: 20220616
  5. ISOSORBIDE MONONITRATE [Concomitant]
     Active Substance: ISOSORBIDE MONONITRATE
     Indication: Coronary artery disease
     Route: 048
  6. ATORVASTATIN CALCIUM [Concomitant]
     Active Substance: ATORVASTATIN CALCIUM
     Indication: Coronary artery disease
     Route: 048
  7. CLOPIDOGREL BISULFATE [Concomitant]
     Active Substance: CLOPIDOGREL BISULFATE
     Indication: Coronary artery disease
     Route: 048
  8. ENTECAVIR [Concomitant]
     Active Substance: ENTECAVIR
     Route: 048
     Dates: start: 20220408
  9. DIPHENHYDRAMINE HYDROCHLORIDE [Concomitant]
     Active Substance: DIPHENHYDRAMINE HYDROCHLORIDE
     Dosage: SUBSEQUENT DOSE  ON: 06/JUL/2022, 27/JUL/2022, 18/AUG/2022
     Route: 030
     Dates: start: 20220615, end: 20220615
  10. COMPOUND PARACETAMOL [Concomitant]
     Dosage: SUBSEQUENT DOSE ON: 06/JUL/2022,27/JUL/2022, 18/AUG/2022, 07/SEP/2022, 09/OCT/2022
     Route: 048
     Dates: start: 20220615, end: 20220615
  11. DEXAMETHASONE SODIUM PHOSPHATE [Concomitant]
     Active Substance: DEXAMETHASONE SODIUM PHOSPHATE
     Dosage: SUBSEQUENT DOSES ON: 06/JUL/2022, 27/JUL/2022, 28/JUL/2022, 18/AUG/2022, 19/AUG/2022, 07/SEP/2022, 0
     Route: 042
     Dates: start: 20220615, end: 20220615
  12. DEXAMETHASONE SODIUM PHOSPHATE [Concomitant]
     Active Substance: DEXAMETHASONE SODIUM PHOSPHATE
     Dosage: SUBSEQUENT DOSES: 07/JUL/2022
     Route: 042
     Dates: start: 20220616, end: 20220616
  13. DEXAMETHASONE SODIUM PHOSPHATE [Concomitant]
     Active Substance: DEXAMETHASONE SODIUM PHOSPHATE
     Dosage: SUBSEQUENT DOSES: 07/JUL/2022, 31/DEC/2022
     Route: 042
     Dates: start: 20230108, end: 20230109
  14. DEXAMETHASONE SODIUM PHOSPHATE [Concomitant]
     Active Substance: DEXAMETHASONE SODIUM PHOSPHATE
     Dates: start: 20230104, end: 20230105
  15. DEXAMETHASONE SODIUM PHOSPHATE [Concomitant]
     Active Substance: DEXAMETHASONE SODIUM PHOSPHATE
     Dates: start: 20230106, end: 20230107
  16. ILAPRAZOLE [Concomitant]
     Active Substance: ILAPRAZOLE
     Dosage: SUBESEQUENT DOSES ON: 06/JUL/2022, 27/JUL/2022, 18/AUG/2022, 07/SEP/2022, 09/OCT/2022,
     Route: 042
     Dates: start: 20220615, end: 20220615
  17. CEFUROXIME AXETIL [Concomitant]
     Active Substance: CEFUROXIME AXETIL
     Route: 048
     Dates: start: 20220616, end: 20220621
  18. DOLASETRON MESYLATE [Concomitant]
     Active Substance: DOLASETRON MESYLATE
     Dosage: SUBSEQUENT DOSE ON: 07/JUL/2022, 28/JUL/2022, 19/AUG/2022, 08/SEP/2022, 10/SEP/2022, 03/NOV/2022, 09
     Route: 042
     Dates: start: 20220616, end: 20220616
  19. RABEPRAZOLE SODIUM [Concomitant]
     Active Substance: RABEPRAZOLE SODIUM
     Dosage: SUBSEQUENT DOSES: 08/SEP/2022
     Route: 042
     Dates: start: 20220616, end: 20220616
  20. PEGYLATED RECOMBINANT HUMAN GRANULOCYTE COLONY STIMULATING FACTOR [Concomitant]
     Dosage: SUBSEQUENT DOSE ON: 09/JUL/2022,  29/JUL/2022, 21/AUG/2022, 10/SEP/2022, 12/OCT/2022, 04/NOV/2022
     Route: 058
     Dates: start: 20220618, end: 20220618
  21. SULFAMETHOXAZOLE [Concomitant]
     Active Substance: SULFAMETHOXAZOLE
     Dosage: SUBSEQUENT DATES: 23/JUN/2022, 27/JUN/2022, 30/JUN/2022, 04/JUL/2022, 07/JUL/2022, 11/JUL/2022, 14/J
     Route: 048
     Dates: start: 20220620, end: 20220620
  22. VALACYCLOVIR HYDROCHLORIDE [Concomitant]
     Active Substance: VALACYCLOVIR HYDROCHLORIDE
     Dosage: SUBSEQUENT DOSES ON: 11/JUL/2022, 04/AUG/2022, 21/AUG/2022, 12/SEP/2022, 03/NOV/2022, 12/DEC/2022, 1
     Route: 048
     Dates: start: 20220620, end: 20220626
  23. RABEPRAZOLE [Concomitant]
     Active Substance: RABEPRAZOLE
     Dosage: SUBSEQUENT DOSES: 28/JUL/2022, 19/AUG/2022
     Route: 042
     Dates: start: 20220707, end: 20220707
  24. FOSAPREPITANT DIMEGLUMINE [Concomitant]
     Active Substance: FOSAPREPITANT DIMEGLUMINE
     Dosage: SUBSEQUENT DOSE ON:28/JUL/2022, 19/AUG/2022, 08/SEP/2022
     Route: 042
     Dates: start: 20220707, end: 20220707
  25. OPRELVEKIN [Concomitant]
     Active Substance: OPRELVEKIN
     Indication: Platelet count decreased
     Route: 058
     Dates: start: 20220624, end: 20220625
  26. DIETARY SUPPLEMENT [Concomitant]
     Active Substance: DIETARY SUPPLEMENT
     Dosage: 1 CAPSULE
     Route: 048
     Dates: start: 20220708, end: 20220710
  27. DIPHENHYDRAMINE [Concomitant]
     Active Substance: DIPHENHYDRAMINE
     Dosage: SUBSEQUENT DOSE : 09/OCT/2022, 02/NOV/2022, 08/DEC/2022
     Route: 067
     Dates: start: 20220907, end: 20220908
  28. DEXAMETHASONE [Concomitant]
     Active Substance: DEXAMETHASONE
     Dosage: SUBSEQUENT DOSES: 10/OCT/2022, 02/NOV/2022 (DOSE 20 MG), 03/NOV/2022, 08/DEC/2022 (20MG), 09/DEC/202
     Route: 042
     Dates: start: 20221009, end: 20221009
  29. DEXAMETHASONE [Concomitant]
     Active Substance: DEXAMETHASONE
     Dosage: SUBSEQUENT DOSES: 08/12/2022
     Route: 042
     Dates: start: 20221102, end: 20221102
  30. BICYCLOL [Concomitant]
     Active Substance: BICYCLOL
     Indication: Aspartate aminotransferase increased
     Route: 048
     Dates: start: 20230109, end: 20230125
  31. BICYCLOL [Concomitant]
     Active Substance: BICYCLOL
     Indication: Alanine aminotransferase increased
  32. POTASSIUM CHLORIDE [Concomitant]
     Active Substance: POTASSIUM CHLORIDE
     Indication: Hypokalaemia
     Route: 048
     Dates: start: 20230115, end: 20230119
  33. INSULIN NOS [Concomitant]
     Active Substance: INSULIN NOS
     Indication: Hyperglycaemia
     Dosage: NEXT DOSE ON : 14/JAN/2023
     Route: 058
     Dates: start: 20230113, end: 20230113
  34. INSULIN NOS [Concomitant]
     Active Substance: INSULIN NOS
     Route: 058
     Dates: start: 20230114, end: 20230114
  35. INSULIN ASPART [Concomitant]
     Active Substance: INSULIN ASPART
     Indication: Hyperglycaemia
     Dosage: 10 UNIT, 12 UNIT
     Route: 058
     Dates: start: 20230116, end: 20230119
  36. INSULIN ASPART [Concomitant]
     Active Substance: INSULIN ASPART
     Dosage: 12 UNIT
     Route: 058
     Dates: start: 20230116, end: 20230116
  37. ILAPRAZOLE [Concomitant]
     Active Substance: ILAPRAZOLE
     Route: 042
     Dates: start: 20221208, end: 20221209
  38. ILAPRAZOLE [Concomitant]
     Active Substance: ILAPRAZOLE
     Route: 042
     Dates: start: 20221102, end: 20221203
  39. ALBUMIN HUMAN [Concomitant]
     Active Substance: ALBUMIN HUMAN
     Route: 042
     Dates: start: 20230119, end: 20230119
  40. ESOMEPRAZOLE MAGNESIUM [Concomitant]
     Active Substance: ESOMEPRAZOLE MAGNESIUM
     Route: 048
     Dates: start: 20230116, end: 20230125
  41. ALANYL GLUTAMINE [Concomitant]
     Active Substance: ALANYL GLUTAMINE
     Dosage: NEXT DOSE ON 19/JAN/2023
     Route: 042
     Dates: start: 20230106, end: 20230107
  42. ACETAMINOPHEN\CAFFEINE [Concomitant]
     Active Substance: ACETAMINOPHEN\CAFFEINE
     Dosage: SUBSEQUENT DOSES ON : 08/12/2022
     Route: 048
     Dates: start: 20221102, end: 20221102
  43. FUROSEMIDE [Concomitant]
     Active Substance: FUROSEMIDE
     Route: 042
     Dates: start: 20230119, end: 20230119
  44. GLIPIZIDE [Concomitant]
     Active Substance: GLIPIZIDE
     Route: 048
     Dates: start: 20230109, end: 20230119
  45. ZOLPIDEM TARTRATE [Concomitant]
     Active Substance: ZOLPIDEM TARTRATE
     Indication: Insomnia
     Route: 048
     Dates: start: 20230116, end: 20230119
  46. HUMAN IMMUNOGLOBULIN G [Concomitant]
     Active Substance: HUMAN IMMUNOGLOBULIN G
     Route: 030
     Dates: start: 20230108, end: 20230119
  47. THYMALFASIN [Concomitant]
     Active Substance: THYMALFASIN
     Dates: start: 20230108, end: 20230119
  48. VITAMIN B6 [Concomitant]
     Active Substance: PYRIDOXINE HYDROCHLORIDE
     Dosage: NEXT DOSE ON: 08/JAN/2023
     Route: 042
     Dates: start: 20221111, end: 20221113
  49. VITAMIN C [Concomitant]
     Active Substance: ASCORBIC ACID
     Route: 042
     Dates: start: 20230113, end: 20230118
  50. OMEPRAZOLE SODIUM [Concomitant]
     Active Substance: OMEPRAZOLE SODIUM
     Route: 042
     Dates: start: 20230111, end: 20230116
  51. NADROPARIN CALCIUM [Concomitant]
     Active Substance: NADROPARIN CALCIUM
     Route: 058
     Dates: start: 20230108, end: 20230118
  52. LORATADINE [Concomitant]
     Active Substance: LORATADINE
     Route: 048
     Dates: start: 20230119, end: 20230120
  53. SULBACTAM SODIUM [Concomitant]
     Active Substance: SULBACTAM SODIUM
     Dates: start: 20230102, end: 20230103

REACTIONS (1)
  - COVID-19 pneumonia [Recovered/Resolved]

NARRATIVE: CASE EVENT DATE: 20221219
